FAERS Safety Report 5615994-6 (Version None)
Quarter: 2008Q1

REPORT INFORMATION
  Report Type: 
  Country: None (occurrence: None)
  Receive Date: 20080206
  Receipt Date: 20080110
  Transmission Date: 20080703
  Serious: No
  Sender: FDA-Public Use
  Company Number: US-BOEHRINGER INGELHEIM GMBH, GERMANY-2007-BP-25481BP

PATIENT
  Sex: Female

DRUGS (7)
  1. CLONIDINE HCL [Suspect]
     Indication: HYPERTENSION
  2. ATENOLOL [Concomitant]
  3. JANUVIA [Concomitant]
  4. SENSIPAL [Concomitant]
  5. GLIMEPIRIDE [Concomitant]
  6. NOVOLIN 50/50 [Concomitant]
  7. PHOSLO [Concomitant]

REACTIONS (3)
  - DIZZINESS [None]
  - HYPERTENSION [None]
  - HYPOTENSION [None]
